FAERS Safety Report 4853158-4 (Version None)
Quarter: 2005Q4

REPORT INFORMATION
  Report Type: 
  Country: None (occurrence: None)
  Receive Date: 20051212
  Receipt Date: 20051123
  Transmission Date: 20060501
  Serious: Yes (Other)
  Sender: FDA-Public Use
  Company Number: TRP_0661_2005

PATIENT
  Age: 59 Year
  Sex: Female
  Weight: 72.5755 kg

DRUGS (4)
  1. RIBASPHERE [Suspect]
     Indication: HEPATITIS C
     Dosage: DF PO
     Route: 048
     Dates: start: 20041202, end: 20051105
  2. PEG-INTRON [Suspect]
     Indication: HEPATITIS C
     Dosage: DF SC
     Route: 058
     Dates: start: 20041202, end: 20051105
  3. NORVASC [Concomitant]
  4. IBUPROFEN [Concomitant]

REACTIONS (5)
  - ANXIETY [None]
  - HEART RATE INCREASED [None]
  - PARANOIA [None]
  - STOMATITIS [None]
  - TEARFULNESS [None]
